FAERS Safety Report 17771448 (Version 7)
Quarter: 2024Q4

REPORT INFORMATION
  Report Type: Report from Study
  Country: ES (occurrence: ES)
  Receive Date: 20200512
  Receipt Date: 20241217
  Transmission Date: 20250114
  Serious: Yes (Hospitalization, Other)
  Sender: MYLAN
  Company Number: ES-ROCHE-1251575

PATIENT
  Age: 68 Year
  Sex: Female
  Weight: 75 kg

DRUGS (26)
  1. METFORMIN [Suspect]
     Active Substance: METFORMIN HYDROCHLORIDE
     Indication: Diabetes mellitus
     Dosage: 850 MILLIGRAM, QD (DOSE PER INTAKE: 850 MG-MILLIGRAMS, FREQUENCY UNIT: 1 DAY)
     Route: 048
     Dates: start: 201211, end: 201310
  2. CARBOPLATIN [Suspect]
     Active Substance: CARBOPLATIN
     Indication: Chemotherapy
     Dosage: UNK,QD
     Route: 065
     Dates: start: 20130729, end: 20130729
  3. CARBOPLATIN [Suspect]
     Active Substance: CARBOPLATIN
     Dosage: 600 MILLIGRAM (DOSE PER INTAKE: 600 MG-MILLIGRAMS)
     Route: 065
     Dates: start: 20130819, end: 20130819
  4. CARBOPLATIN [Suspect]
     Active Substance: CARBOPLATIN
     Dosage: 840 MILLIGRAM, QD (DOSE PER INTAKE: 840 MG-MILLIGRAMS, FREQUENCY UNIT: 1 DAY)
     Route: 065
     Dates: start: 20130701, end: 20130729
  5. DOCETAXEL [Suspect]
     Active Substance: DOCETAXEL
     Indication: Chemotherapy
     Dosage: 130 MILLIGRAM (|| DOSE UNIT FREQUENCY: 130 MG-MILLIGRAMS || DOSE PER DOSE: 130 MG-MILLIGRAMS)
     Route: 042
     Dates: start: 20130701
  6. CIPROFLOXACIN HYDROCHLORIDE [Suspect]
     Active Substance: CIPROFLOXACIN HYDROCHLORIDE
     Indication: Product used for unknown indication
     Dosage: 500 MILLIGRAM, BID (DOSE PER INTAKE: 500 MG-MILLIGRAMS, FREQUENCY UNIT: 12 HOUR)
     Route: 065
     Dates: start: 20130709, end: 20130710
  7. CIPROFLOXACIN HYDROCHLORIDE [Suspect]
     Active Substance: CIPROFLOXACIN HYDROCHLORIDE
     Dosage: 500 MILLIGRAM, BID (DOSE PER INTAKE: 500 MG-MILLIGRAMS, FREQUENCY UNIT: 12 HOUR)
     Route: 065
     Dates: start: 20130712
  8. TAXOTERE [Suspect]
     Active Substance: DOCETAXEL
     Indication: Chemotherapy
     Dosage: 130 MILLIGRAM (STRENGTH: 20 MG/ML) (DOSE UNIT FREQUENCY: 130 MG-MILLIGRAMS, DOSE PER INTAKE: 130 MG-
     Route: 065
     Dates: start: 20130701
  9. FOSFOMYCIN [Suspect]
     Active Substance: FOSFOMYCIN
     Indication: Product used for unknown indication
     Dosage: 1 GRAM, QD (1 G/ 24 HR) (DOSE PER INTAKE: 1 G-GRAMS, FREQUENCY UNIT: 1 DAY)
     Route: 065
     Dates: start: 20130704, end: 20130705
  10. TRASTUZUMAB [Concomitant]
     Active Substance: TRASTUZUMAB
     Indication: HER2 positive breast cancer
     Dosage: 1800 MG, QW (600 MILLIGRAM, Q3W (DOSE PER INTAKE: 600 MG-MILLIGRAMS, FREQUENCY UNIT: 3 WEEKS))
     Route: 058
     Dates: start: 20130701, end: 20130722
  11. TRASTUZUMAB [Concomitant]
     Active Substance: TRASTUZUMAB
     Indication: Breast cancer
     Dosage: 1800 MG, QW (600 MILLIGRAM, Q3W (DOSE PER INTAKE: 600 MG-MILLIGRAM, FREQUENCY UNIT: 3 WEEK))
     Route: 058
     Dates: start: 20130729, end: 20131001
  12. TRASTUZUMAB [Concomitant]
     Active Substance: TRASTUZUMAB
     Dosage: 1800 MG, QW (600 MILLIGRAM, Q3W (DOSE PER INTAKE: 600 MG-MILLIGRAM, FREQUENCY UNIT: 3 WEEK))
     Route: 065
     Dates: start: 20131022
  13. TRASTUZUMAB [Concomitant]
     Active Substance: TRASTUZUMAB
     Dosage: UNK
     Route: 058
  14. FERROUS SULFATE [Concomitant]
     Active Substance: FERROUS SULFATE
     Indication: Product used for unknown indication
     Dosage: UNK
     Route: 065
     Dates: start: 20130729, end: 20130730
  15. NEUPOGEN [Concomitant]
     Active Substance: FILGRASTIM
     Indication: Product used for unknown indication
     Dosage: 6000/MIU/L
     Route: 065
     Dates: start: 20130820, end: 20130824
  16. NEUPOGEN [Concomitant]
     Active Substance: FILGRASTIM
     Dosage: 6000/U/ML
     Route: 065
     Dates: start: 20130805, end: 20130807
  17. NEUPOGEN [Concomitant]
     Active Substance: FILGRASTIM
     Dosage: 150000/U/ML
     Route: 065
     Dates: start: 20130819, end: 20130820
  18. DOMPERIDONE [Concomitant]
     Active Substance: DOMPERIDONE
     Indication: Product used for unknown indication
     Dosage: 20 MG/ML
     Route: 065
     Dates: start: 20130805
  19. PANTOPRAZOLE SODIUM [Concomitant]
     Active Substance: PANTOPRAZOLE SODIUM
     Indication: Product used for unknown indication
     Dosage: 500 MILLIGRAM (DOSE PER INTAKE: 500 MG-MILLIGRAM)
     Route: 065
     Dates: start: 201211
  20. RANITIDINE [Concomitant]
     Active Substance: RANITIDINE
     Indication: Product used for unknown indication
     Dosage: 300 MILLIGRAM
     Route: 042
     Dates: start: 201211
  21. RANITIDINE [Concomitant]
     Active Substance: RANITIDINE
     Dosage: 150 MILLIGRAM (DOSE PER INTAKE: 150 MG-MILLIGRAMS)
     Route: 042
     Dates: start: 201211
  22. NITROFURANTOIN [Concomitant]
     Active Substance: NITROFURANTOIN
     Dosage: UNK
     Route: 065
     Dates: start: 20130805, end: 20130812
  23. ACETAMINOPHEN [Concomitant]
     Active Substance: ACETAMINOPHEN
     Indication: Product used for unknown indication
     Dosage: 500 MILLIGRAM (DOSE PER INTAKE: 500 MG-MILLIGRAMS)
     Route: 065
     Dates: start: 201211
  24. SIMVASTATIN [Concomitant]
     Active Substance: SIMVASTATIN
     Indication: Product used for unknown indication
     Dosage: 40 MILLIGRAM
     Route: 065
     Dates: start: 201211
  25. SIMVASTATIN [Concomitant]
     Active Substance: SIMVASTATIN
     Dosage: 20 MILLIGRAM (DOSE PER INTAKE: 20 MG-MILLIGRAM)
     Route: 065
     Dates: start: 201211
  26. AMOXICILLIN\CLAVULANIC ACID [Concomitant]
     Active Substance: AMOXICILLIN\CLAVULANIC ACID
     Indication: Product used for unknown indication
     Dosage: 37.5 MILLIGRAM, QD (DOSE PER INTAKE: 37.5 MG-MILLIGRAMS, FREQUENCY UNIT: 1 DAY)
     Route: 065
     Dates: start: 20130703, end: 20130704

REACTIONS (4)
  - Acute kidney injury [Recovered/Resolved]
  - Blood creatinine decreased [Unknown]
  - Diarrhoea [Recovered/Resolved]
  - Ejection fraction decreased [Unknown]

NARRATIVE: CASE EVENT DATE: 20130706
